FAERS Safety Report 17959529 (Version 2)
Quarter: 2020Q3

REPORT INFORMATION
  Report Type: Spontaneous
  Country: IT (occurrence: IT)
  Receive Date: 20200629
  Receipt Date: 20200716
  Transmission Date: 20201103
  Serious: Yes (Other)
  Sender: FDA-Public Use
  Company Number: IT-SA-2020SA165201

PATIENT

DRUGS (8)
  1. FLUOROURACIL. [Suspect]
     Active Substance: FLUOROURACIL
     Indication: COLON CANCER METASTATIC
     Dosage: 2738 MG, QCY
     Route: 042
     Dates: start: 20190913, end: 20190913
  2. ZALTRAP [Suspect]
     Active Substance: ZIV-AFLIBERCEPT
     Indication: COLON CANCER METASTATIC
     Dosage: 240 MG, QCY
     Route: 042
     Dates: start: 20190913, end: 20190913
  3. IRINOTECAN [Suspect]
     Active Substance: IRINOTECAN
     Dosage: 205 MG, QCY
     Route: 042
     Dates: start: 20200529, end: 20200529
  4. FLUOROURACIL. [Suspect]
     Active Substance: FLUOROURACIL
     Dosage: 456 MG, QCY
     Route: 042
     Dates: start: 20190913, end: 20190913
  5. FLUOROURACIL. [Suspect]
     Active Substance: FLUOROURACIL
     Dosage: 2738 MG, QCY
     Route: 042
     Dates: start: 20200529, end: 20200529
  6. ZALTRAP [Suspect]
     Active Substance: ZIV-AFLIBERCEPT
     Dosage: 240 MG, QCY
     Route: 042
     Dates: start: 20200529, end: 20200529
  7. IRINOTECAN [Suspect]
     Active Substance: IRINOTECAN
     Indication: COLON CANCER METASTATIC
     Dosage: 205 MG, QCY
     Route: 042
     Dates: start: 20190913, end: 20190913
  8. FLUOROURACIL. [Suspect]
     Active Substance: FLUOROURACIL
     Dosage: 456 MG, QCY
     Route: 042
     Dates: start: 20200529, end: 20200529

REACTIONS (2)
  - Hypertransaminasaemia [Unknown]
  - Neutropenia [Unknown]

NARRATIVE: CASE EVENT DATE: 20200612
